FAERS Safety Report 5331471-4 (Version None)
Quarter: 2007Q2

REPORT INFORMATION
  Report Type: 
  Country: None (occurrence: None)
  Receive Date: 20070522
  Receipt Date: 20070511
  Transmission Date: 20071010
  Serious: Yes (Other)
  Sender: FDA-Public Use
  Company Number: BR-PFIZER INC-2007038337

PATIENT
  Age: 68 Year
  Sex: Male

DRUGS (10)
  1. CARDURAN XL [Suspect]
     Indication: PROSTATIC DISORDER
     Route: 048
  2. ISCOVER [Concomitant]
     Route: 048
  3. ATENOL [Concomitant]
     Route: 048
  4. PARIET [Concomitant]
     Route: 048
  5. SERTRALINE [Concomitant]
     Route: 048
  6. METFORMIN HCL [Concomitant]
     Route: 048
  7. PROSCAR [Concomitant]
     Route: 048
  8. AAS [Concomitant]
     Route: 048
  9. SIMVASTATIN [Concomitant]
  10. LEXOTAN [Concomitant]
     Route: 048

REACTIONS (5)
  - ANAL FISSURE [None]
  - ANGIOPLASTY [None]
  - ANORECTAL DISORDER [None]
  - DIABETES MELLITUS [None]
  - DRY SKIN [None]
